FAERS Safety Report 5782951-9 (Version None)
Quarter: 2008Q2

REPORT INFORMATION
  Report Type: 
  Country: None (occurrence: None)
  Receive Date: 20080619
  Receipt Date: 20080603
  Transmission Date: 20081010
  Serious: Yes (Other)
  Sender: FDA-Public Use
  Company Number: 8033430

PATIENT
  Sex: Female

DRUGS (1)
  1. KEPPRA [Suspect]
     Dosage: 2000 MG 1/D PO
     Route: 048
     Dates: start: 20030101

REACTIONS (9)
  - CHEST DISCOMFORT [None]
  - GRAND MAL CONVULSION [None]
  - HYPOTENSION [None]
  - NERVOUSNESS [None]
  - PHOTOSENSITIVITY REACTION [None]
  - THYROID FUNCTION TEST ABNORMAL [None]
  - TREMOR [None]
  - VERTIGO [None]
  - WEIGHT INCREASED [None]
